FAERS Safety Report 6464796-X (Version None)
Quarter: 2009Q4

REPORT INFORMATION
  Report Type: 
  Country: None (occurrence: None)
  Receive Date: 20091201
  Receipt Date: 20091125
  Transmission Date: 20100525
  Serious: Yes (Hospitalization)
  Sender: FDA-Public Use
  Company Number: PHEH2009US11609

PATIENT
  Sex: Female

DRUGS (4)
  1. FEMARA [Suspect]
  2. METHYLPREDNISOLONE [Concomitant]
  3. LOMOTIL [Concomitant]
  4. FLORESTOR [Concomitant]

REACTIONS (2)
  - COLITIS [None]
  - DIARRHOEA [None]
